FAERS Safety Report 9329855 (Version 1)
Quarter: 2013Q2

REPORT INFORMATION
  Report Type: Spontaneous
  Country: US (occurrence: US)
  Receive Date: 20130604
  Receipt Date: 20130604
  Transmission Date: 20140414
  Serious: Yes (Other)
  Sender: FDA-Public Use
  Company Number: US-SANOFI-AVENTIS-2013SA004456

PATIENT
  Age: 70 Year
  Sex: Female
  Weight: 63.5 kg

DRUGS (2)
  1. LANTUS SOLOSTAR [Suspect]
     Indication: DIABETES MELLITUS
     Dosage: DOSE:20 UNIT(S)
     Route: 058
     Dates: start: 200801
  2. SOLOSTAR [Suspect]
     Indication: DIABETES MELLITUS
     Dates: start: 200801

REACTIONS (2)
  - Hypoglycaemic coma [Recovered/Resolved]
  - Blood glucose increased [Recovered/Resolved]
